FAERS Safety Report 10766292 (Version 3)
Quarter: 2015Q1

REPORT INFORMATION
  Report Type: Report from Study
  Country: DE (occurrence: DE)
  Receive Date: 20150205
  Receipt Date: 20150316
  Transmission Date: 20150721
  Serious: Yes (Other)
  Sender: FDA-Public Use
  Company Number: DE-BEH-2015048545

PATIENT
  Age: 66 Year
  Sex: Male
  Weight: 83 kg

DRUGS (10)
  1. PREDNISOLON [Concomitant]
     Active Substance: PREDNISOLONE
     Indication: HYPOPITUITARISM
     Dosage: CURRENTLY 7.5 MG
     Route: 048
     Dates: start: 20140515
  2. PANTOPRAZOLE [Concomitant]
     Active Substance: PANTOPRAZOLE SODIUM
     Indication: GASTRITIS
  3. PRIVIGEN [Suspect]
     Active Substance: HUMAN IMMUNOGLOBULIN G
     Indication: SECONDARY IMMUNODEFICIENCY
     Dates: start: 20140828
  4. PRIVIGEN [Suspect]
     Active Substance: HUMAN IMMUNOGLOBULIN G
     Indication: CHRONIC LYMPHOCYTIC LEUKAEMIA
     Dosage: 10 % SOLUTION CONCENTRATION; FLOW RATE: MIN. 0.4 ML/MIN, MAX. 2.7 ML/MIN
     Route: 042
     Dates: start: 20141029, end: 20141029
  5. PRIVIGEN [Suspect]
     Active Substance: HUMAN IMMUNOGLOBULIN G
     Indication: SECONDARY IMMUNODEFICIENCY
     Dosage: FLOW RATE: MIN. 0.4168 ML/MIN, MAX. 2.7333 ML/MIN
     Route: 042
     Dates: start: 20141104, end: 20141104
  6. TAMSULOSIN [Concomitant]
     Active Substance: TAMSULOSIN
     Dosage: 0.4
  7. SORTIS [Concomitant]
     Active Substance: ATORVASTATIN
  8. VALSARTAN COMP [Concomitant]
     Indication: HYPERTENSION
     Dosage: 320/25 MG SINCE YEARS
     Route: 048
  9. FINUSAL [Concomitant]
  10. PRIVIGEN [Suspect]
     Active Substance: HUMAN IMMUNOGLOBULIN G
     Indication: INFECTION
     Dosage: FLOW RATE: MIN. 0.416 ML/MIN, MAX. 5.433 ML/MIN
     Route: 042
     Dates: start: 20141031, end: 20141031

REACTIONS (3)
  - Induration [Recovered/Resolved]
  - Tenderness [Recovered/Resolved]
  - Venous thrombosis limb [Recovered/Resolved]

NARRATIVE: CASE EVENT DATE: 20141028
